FAERS Safety Report 10373830 (Version 1)
Quarter: 2014Q1

REPORT INFORMATION
  Report Type: Spontaneous
  Country: US (occurrence: None)
  Receive Date: 20140306
  Receipt Date: 20140306
  Transmission Date: 20141002
  Serious: No
  Sender: FDA-Public Use
  Company Number: 163-21880-13094374

PATIENT
  Age: 49 Year
  Sex: Female

DRUGS (2)
  1. REVLIMID [Suspect]
     Indication: CHRONIC LYMPHOCYTIC LEUKAEMIA
     Route: 048
     Dates: start: 20130901
  2. OFATUMUMAB [Concomitant]

REACTIONS (8)
  - Diverticulitis [None]
  - Pancytopenia [None]
  - Neutropenia [None]
  - Fungal infection [None]
  - Arthralgia [None]
  - Hypoaesthesia [None]
  - Infection [None]
  - Rash pruritic [None]
